FAERS Safety Report 10951493 (Version 1)
Quarter: 2015Q1

REPORT INFORMATION
  Report Type: Spontaneous
  Country: ZA (occurrence: ZA)
  Receive Date: 20150324
  Receipt Date: 20150324
  Transmission Date: 20150721
  Serious: Yes (Hospitalization)
  Sender: FDA-Public Use
  Company Number: PHHY2015ZA034339

PATIENT
  Age: 12 Year
  Sex: Male

DRUGS (1)
  1. RITALIN LA [Suspect]
     Active Substance: METHYLPHENIDATE HYDROCHLORIDE
     Indication: PRODUCT USED FOR UNKNOWN INDICATION
     Dosage: 25 MG (20 MG LA AND 5 MG AT PM), QD
     Route: 065

REACTIONS (2)
  - Headache [Unknown]
  - Vomiting [Unknown]
